FAERS Safety Report 6128813-9 (Version None)
Quarter: 2009Q1

REPORT INFORMATION
  Report Type: 
  Country: None (occurrence: None)
  Receive Date: 20090323
  Receipt Date: 20090313
  Transmission Date: 20090719
  Serious: Yes (Other)
  Sender: FDA-Public Use
  Company Number: GB-GENENTECH-279277

PATIENT
  Age: 41 Year
  Sex: Female

DRUGS (6)
  1. SOMATROPIN [Suspect]
     Indication: HYPOPITUITARISM
     Dosage: UNK
     Route: 065
     Dates: start: 20041201, end: 20050201
  2. SOMATROPIN [Suspect]
     Dosage: 0.6 U, QD
     Route: 065
     Dates: start: 20050201, end: 20060401
  3. INSULIN [Concomitant]
     Indication: TYPE 1 DIABETES MELLITUS
     Route: 040
  4. HORMONE REPLACEMENT THERAPY (UNK INGREDIENTS) [Concomitant]
     Indication: DRUG USE FOR UNKNOWN INDICATION
     Route: 065
  5. SIMVASTATIN [Concomitant]
     Indication: DRUG USE FOR UNKNOWN INDICATION
     Route: 065
  6. LEVOTHYROXINE [Concomitant]
     Indication: DRUG USE FOR UNKNOWN INDICATION
     Route: 065

REACTIONS (1)
  - DIABETIC RETINOPATHY [None]
